FAERS Safety Report 24151576 (Version 1)
Quarter: 2024Q3

REPORT INFORMATION
  Report Type: Spontaneous
  Country: US (occurrence: US)
  Receive Date: 20240730
  Receipt Date: 20240730
  Transmission Date: 20241017
  Serious: No
  Sender: PERRIGO
  Company Number: US-PERRIGO-23US012972

PATIENT
  Age: 85 Year
  Sex: Female
  Weight: 71.202 kg

DRUGS (12)
  1. LORATADINE [Suspect]
     Active Substance: LORATADINE
     Indication: Pruritus
     Dosage: 10 MG, QAM
     Route: 048
     Dates: start: 20231108, end: 20231109
  2. LORATADINE [Suspect]
     Active Substance: LORATADINE
     Indication: Adverse drug reaction
  3. TRAMADOL [Suspect]
     Active Substance: TRAMADOL\TRAMADOL HYDROCHLORIDE
     Indication: Pain
     Dosage: 25 MG TO 50 MG, BID
     Route: 048
     Dates: start: 20231103
  4. ELIQUIS [Concomitant]
     Active Substance: APIXABAN
     Indication: Prophylaxis
     Dosage: 2.5 MG, UNKNOWN
     Route: 065
  5. ELIQUIS [Concomitant]
     Active Substance: APIXABAN
     Indication: Transient ischaemic attack
  6. AMIODARONE [Concomitant]
     Active Substance: AMIODARONE
     Indication: Blood pressure abnormal
     Dosage: 100 MG, UNKNOWN
     Route: 065
  7. AMIODARONE [Concomitant]
     Active Substance: AMIODARONE
     Indication: Supplementation therapy
  8. CARVEDILOL [Concomitant]
     Active Substance: CARVEDILOL
     Indication: Blood cholesterol abnormal
     Dosage: 40 MG, QHS
     Route: 065
  9. VITAMIN D NOS [Concomitant]
     Active Substance: CHOLECALCIFEROL\ERGOCALCIFEROL
     Indication: Product used for unknown indication
     Dosage: UNK
     Route: 065
  10. VITAMINS NOS [Concomitant]
     Active Substance: VITAMINS
     Indication: Supplementation therapy
     Dosage: UNK
     Route: 065
  11. TORSEMIDE [Concomitant]
     Active Substance: TORSEMIDE
     Indication: Fluid retention
     Dosage: UNK
     Route: 065
     Dates: start: 2021
  12. UNSPECIFIED INGREDIENT [Concomitant]
     Active Substance: UNSPECIFIED INGREDIENT
     Indication: Joint injury
     Dosage: UNK
     Route: 030
     Dates: start: 20231108, end: 20231108

REACTIONS (3)
  - Rash erythematous [Not Recovered/Not Resolved]
  - Feeling hot [Not Recovered/Not Resolved]
  - Drug effective for unapproved indication [Unknown]

NARRATIVE: CASE EVENT DATE: 20231108
